FAERS Safety Report 14609841 (Version 1)
Quarter: 2018Q1

REPORT INFORMATION
  Report Type: Report from Study
  Country: ES (occurrence: ES)
  Receive Date: 20180307
  Receipt Date: 20180307
  Transmission Date: 20180509
  Serious: Yes (Other)
  Sender: FDA-Public Use
  Company Number: ES-TEVA-2018-ES-864043

PATIENT
  Age: 42 Year
  Sex: Female
  Weight: 83.5 kg

DRUGS (7)
  1. QUETIAPINA [Concomitant]
     Active Substance: QUETIAPINE
     Indication: MENTAL DISORDER
     Route: 048
     Dates: start: 20150206
  2. AVASTIN [Suspect]
     Active Substance: BEVACIZUMAB
     Dosage: 25 MG/ML?LAST DOSE OF BEVACIZUMAB: 05/SEP/2016
     Route: 042
     Dates: start: 20160711
  3. AVASTIN [Suspect]
     Active Substance: BEVACIZUMAB
     Indication: BREAST CANCER METASTATIC
     Route: 042
     Dates: start: 20170123
  4. CLORAZEPATO DIPOTASICO [Concomitant]
     Indication: MENTAL DISORDER
     Route: 048
     Dates: start: 20120821
  5. PACLITAXEL. [Suspect]
     Active Substance: PACLITAXEL
     Indication: BREAST CANCER METASTATIC
     Route: 042
     Dates: start: 20170123
  6. PACLITAXEL. [Suspect]
     Active Substance: PACLITAXEL
     Dosage: 6 MG/ML?LAST DOSE OF PACLITAXEL: 05/SEP/2016
     Route: 042
     Dates: start: 20160711
  7. ESCITALOPRAM [Concomitant]
     Active Substance: ESCITALOPRAM OXALATE
     Indication: MENTAL DISORDER
     Route: 048
     Dates: start: 20121105

REACTIONS (4)
  - Hypertension [Recovered/Resolved]
  - Hepatotoxicity [Recovered/Resolved]
  - Asthenia [Recovered/Resolved]
  - Asthenia [Recovered/Resolved]

NARRATIVE: CASE EVENT DATE: 20160726
